FAERS Safety Report 24429340 (Version 2)
Quarter: 2024Q4

REPORT INFORMATION
  Report Type: Spontaneous
  Country: US (occurrence: US)
  Receive Date: 20241011
  Receipt Date: 20241209
  Transmission Date: 20250114
  Serious: No
  Sender: INCYTE
  Company Number: US-INCYTE CORPORATION-2024IN010260

PATIENT

DRUGS (2)
  1. OPZELURA [Suspect]
     Active Substance: RUXOLITINIB PHOSPHATE
     Indication: Eczema
     Dosage: UNK
     Route: 065
  2. OPZELURA [Suspect]
     Active Substance: RUXOLITINIB PHOSPHATE
     Indication: Dermatitis atopic

REACTIONS (7)
  - Eczema [Not Recovered/Not Resolved]
  - Visual impairment [Not Recovered/Not Resolved]
  - Head injury [Not Recovered/Not Resolved]
  - Diplopia [Not Recovered/Not Resolved]
  - Insurance issue [Unknown]
  - Off label use [Unknown]
  - Drug effective for unapproved indication [Unknown]
